FAERS Safety Report 4575859-8 (Version None)
Quarter: 2005Q1

REPORT INFORMATION
  Report Type: 
  Country: None (occurrence: None)
  Receive Date: 20050204
  Receipt Date: 20050121
  Transmission Date: 20050727
  Serious: Yes (Hospitalization)
  Sender: FDA-Public Use
  Company Number: 2005017835

PATIENT
  Age: 40 Year
  Sex: Female

DRUGS (13)
  1. PREDNISONE [Suspect]
     Indication: SYSTEMIC LUPUS ERYTHEMATOSUS
     Dosage: 70 MG (QD), ORAL
     Route: 048
  2. ATENOLOL [Suspect]
     Indication: HYPERTENSION
     Dosage: 50 MG (25 MG, BID), ORAL
     Route: 048
  3. MIDAZOLAM HCL [Suspect]
     Indication: ILL-DEFINED DISORDER
     Dosage: INTRAVENOUS
     Route: 042
     Dates: start: 20041208
  4. VALPROIC ACID [Suspect]
     Indication: ILL-DEFINED DISORDER
  5. FUROSEMIDE               (FUROSEMIDE) [Suspect]
     Indication: ILL-DEFINED DISORDER
  6. ALLOPURINOL [Suspect]
     Indication: ILL-DEFINED DISORDER
  7. FOSINOPRIL SODIUM [Suspect]
     Indication: ILL-DEFINED DISORDER
  8. FENTANYL [Suspect]
     Indication: ILL-DEFINED DISORDER
  9. CEFTRIAZONE SODIUM                 (CEFTRIAXONE SODIUM) [Suspect]
     Indication: SEPSIS
     Dosage: 2 GRAM (QD), INTRAVENOUS
     Route: 042
     Dates: start: 20041208, end: 20041212
  10. URAPIDIL             (URAPIDIL) [Suspect]
     Indication: HYPERTENSION
     Dosage: 30 MG, BID, ORAL
     Route: 048
  11. OFLOXACIN [Suspect]
     Indication: SEPSIS
     Dosage: 400 MG (200 MG, BID) INTRAVENOUS
     Route: 042
     Dates: start: 20041208, end: 20041212
  12. PRAVASTATIN SODIUM [Suspect]
     Indication: ILL-DEFINED DISORDER
  13. CISATRACURIUM BESILATE                (CISATRACURIUM BESILATE) [Suspect]
     Indication: ILL-DEFINED DISORDER

REACTIONS (1)
  - THROMBOCYTOPENIA [None]
